FAERS Safety Report 11190253 (Version 1)
Quarter: 2015Q2

REPORT INFORMATION
  Report Type: Spontaneous
  Country: US (occurrence: None)
  Receive Date: 20150612
  Receipt Date: 20150612
  Transmission Date: 20150821
  Serious: Yes (Disabling)
  Sender: FDA-Public Use
  Company Number: None

PATIENT
  Age: 62 Year
  Sex: Female
  Weight: 63.5 kg

DRUGS (7)
  1. OMEPRAZOLE. [Concomitant]
     Active Substance: OMEPRAZOLE
  2. CALCIUM [Concomitant]
     Active Substance: CALCIUM
  3. VITAMIN D [Concomitant]
     Active Substance: CHOLECALCIFEROL
  4. LEVAQUIN [Suspect]
     Active Substance: LEVOFLOXACIN
     Indication: SINUSITIS
     Dosage: 10 PILLS ONCE DAILY TAKEN BY MOUTH
     Route: 048
     Dates: start: 20150331, end: 20150409
  5. LISINOPRIL. [Concomitant]
     Active Substance: LISINOPRIL
  6. VENLAFAXINE [Concomitant]
     Active Substance: VENLAFAXINE HYDROCHLORIDE
  7. STOOL SOFTENER [Concomitant]
     Active Substance: DOCUSATE CALCIUM

REACTIONS (3)
  - Disability [None]
  - Arthralgia [None]
  - Tendon pain [None]

NARRATIVE: CASE EVENT DATE: 20150405
